FAERS Safety Report 7245687-3 (Version None)
Quarter: 2011Q1

REPORT INFORMATION
  Report Type: 
  Country: None (occurrence: None)
  Receive Date: 20110126
  Receipt Date: 20110118
  Transmission Date: 20110831
  Serious: Yes (Hospitalization)
  Sender: FDA-Public Use
  Company Number: US-ELI_LILLY_AND_COMPANY-US201101004370

PATIENT
  Sex: Male

DRUGS (11)
  1. NEUPOGEN [Concomitant]
     Indication: WHITE BLOOD CELL COUNT DECREASED
     Route: 058
     Dates: start: 20110111
  2. ASPIRIN [Concomitant]
     Indication: PROPHYLAXIS
     Route: 048
  3. LOVASTATIN [Concomitant]
     Indication: HYPERCHOLESTEROLAEMIA
     Dosage: UNK, UNK
     Route: 048
  4. GEMCITABINE HYDROCHLORIDE [Suspect]
     Indication: PANCREATIC CARCINOMA
     Dosage: 1000 MG/M2, UNKNOWN
     Route: 042
     Dates: start: 20101012
  5. LISINOPRIL [Concomitant]
     Indication: HYPERTENSION
     Route: 048
  6. PANTOPRAZOLE [Concomitant]
     Indication: GASTROOESOPHAGEAL REFLUX DISEASE
     Route: 048
     Dates: start: 20101101
  7. IMODIUM [Concomitant]
     Indication: DIARRHOEA
     Route: 048
     Dates: start: 20110111
  8. PACLITAXEL [Suspect]
     Indication: PANCREATIC CARCINOMA
     Dosage: 125 MG/M2, UNKNOWN
     Route: 042
     Dates: start: 20101012
  9. COREG [Concomitant]
     Indication: HYPERTENSION
     Route: 048
  10. PERCOCET [Concomitant]
     Indication: ABDOMINAL PAIN
     Route: 048
     Dates: start: 20101101
  11. COMPAZINE [Concomitant]
     Indication: PROPHYLAXIS
     Route: 048
     Dates: start: 20101228

REACTIONS (1)
  - DEHYDRATION [None]
